FAERS Safety Report 13006767 (Version 1)
Quarter: 2016Q4

REPORT INFORMATION
  Report Type: Spontaneous
  Country: PL (occurrence: PL)
  Receive Date: 20161207
  Receipt Date: 20161207
  Transmission Date: 20170207
  Serious: Yes (Other)
  Sender: FDA-Public Use
  Company Number: PL-TEVA-717635ACC

PATIENT
  Age: 55 Year
  Sex: Female
  Weight: 96 kg

DRUGS (11)
  1. LOREBLOK HCT [Suspect]
     Active Substance: HYDROCHLOROTHIAZIDE\LOSARTAN POTASSIUM
     Indication: ESSENTIAL HYPERTENSION
     Dosage: DOSE: 50+12.5; DOSE UNIT: MG
     Route: 048
  2. DORMICUM [Concomitant]
     Active Substance: MIDAZOLAM\MIDAZOLAM HYDROCHLORIDE
     Indication: PREMEDICATION
     Route: 048
  3. FENTANYL WZF [Concomitant]
     Route: 042
     Dates: start: 20141011, end: 20141011
  4. CHLORPROTIXEN [Concomitant]
     Active Substance: CHLORPROTHIXENE HYDROCHLORIDE
     Indication: DEPRESSION
     Route: 048
  5. SIOFOR [Concomitant]
     Active Substance: METFORMIN HYDROCHLORIDE
     Indication: DIABETES MELLITUS
     Dosage: 1000 MILLIGRAM DAILY;
     Route: 048
  6. PLOFED 1% [Suspect]
     Active Substance: PROPOFOL
     Indication: GENERAL ANAESTHESIA
     Route: 042
     Dates: start: 20141011, end: 20141011
  7. SEVORANE [Concomitant]
     Active Substance: SEVOFLURANE
     Indication: GENERAL ANAESTHESIA
     Dosage: DOSE: NOT SPECIFIED; DOSE UNIT: NOT SPECIFIED
     Route: 055
     Dates: start: 20141011, end: 20141011
  8. NIMBEX [Concomitant]
     Active Substance: CISATRACURIUM BESYLATE
     Indication: THROMBOSIS PROPHYLAXIS
     Route: 058
     Dates: start: 20141011
  9. PERNAZINUM [Concomitant]
     Active Substance: PERAZINE DIMALEATE
     Indication: DEPRESSION
     Route: 048
  10. AMLODIPINUM 123RATIO [Suspect]
     Active Substance: AMLODIPINE BESYLATE
     Indication: ESSENTIAL HYPERTENSION
     Dosage: 10 MILLIGRAM DAILY;
     Route: 048
  11. MIDAZOLAM ACCORD [Concomitant]
     Indication: GENERAL ANAESTHESIA
     Route: 042
     Dates: start: 20141011

REACTIONS (1)
  - Blood pressure decreased [Recovered/Resolved]

NARRATIVE: CASE EVENT DATE: 20141011
